FAERS Safety Report 7736821-7 (Version None)
Quarter: 2011Q3

REPORT INFORMATION
  Report Type: 
  Country: None (occurrence: None)
  Receive Date: 20110908
  Receipt Date: 20110908
  Transmission Date: 20111222
  Serious: Yes (Disabling, Other)
  Sender: FDA-Public Use
  Company Number: None

PATIENT
  Age: 8 Year
  Sex: Male
  Weight: 26.308 kg

DRUGS (1)
  1. INTUNIV [Suspect]
     Indication: ATTENTION DEFICIT/HYPERACTIVITY DISORDER
     Dosage: 2MG
     Route: 048
     Dates: start: 20110620, end: 20110803

REACTIONS (6)
  - POLLAKIURIA [None]
  - UNRESPONSIVE TO STIMULI [None]
  - INCOHERENT [None]
  - RESTLESSNESS [None]
  - ABNORMAL BEHAVIOUR [None]
  - SOMNAMBULISM [None]
